FAERS Safety Report 7105275-6 (Version None)
Quarter: 2010Q4

REPORT INFORMATION
  Report Type: 
  Country: None (occurrence: None)
  Receive Date: 20101116
  Receipt Date: 20101108
  Transmission Date: 20110411
  Serious: Yes (Hospitalization)
  Sender: FDA-Public Use
  Company Number: US-AMGEN-USASP2010003867

PATIENT

DRUGS (1)
  1. ENBREL [Suspect]
     Indication: RHEUMATOID ARTHRITIS
     Dates: start: 20070101, end: 20101001

REACTIONS (12)
  - ABDOMINAL INFECTION [None]
  - INCISION SITE COMPLICATION [None]
  - INCISION SITE ERYTHEMA [None]
  - INCISION SITE INFECTION [None]
  - INCISION SITE OEDEMA [None]
  - LIGAMENT RUPTURE [None]
  - LOCALISED INTRAABDOMINAL FLUID COLLECTION [None]
  - OPERATIVE HAEMORRHAGE [None]
  - POST PROCEDURAL COMPLICATION [None]
  - POSTOPERATIVE FEVER [None]
  - RHEUMATOID ARTHRITIS [None]
  - ROTATOR CUFF SYNDROME [None]
